FAERS Safety Report 4893567-0 (Version None)
Quarter: 2005Q4

REPORT INFORMATION
  Report Type: 
  Country: None (occurrence: None)
  Receive Date: 20051223
  Receipt Date: 20051115
  Transmission Date: 20060501
  Serious: No
  Sender: FDA-Public Use
  Company Number: 2005PV004432

PATIENT
  Age: 39 Year
  Sex: Female

DRUGS (3)
  1. SYMLIN [Suspect]
     Indication: DIABETES MELLITUS NON-INSULIN-DEPENDENT
     Dosage: 84 MCG;BID;SC
     Route: 058
     Dates: start: 20050901
  2. ACTOS [Concomitant]
  3. AMARYL [Concomitant]

REACTIONS (1)
  - OEDEMA PERIPHERAL [None]
